FAERS Safety Report 14283723 (Version 1)
Quarter: 2017Q4

REPORT INFORMATION
  Report Type: Spontaneous
  Country: US (occurrence: US)
  Receive Date: 20171213
  Receipt Date: 20171213
  Transmission Date: 20180321
  Serious: Yes (Hospitalization, Disabling, Other)
  Sender: FDA-Public Use
  Company Number: None

PATIENT
  Age: 25 Year
  Sex: Male
  Weight: 66.6 kg

DRUGS (2)
  1. PHOSPHORUS [Concomitant]
     Active Substance: PHOSPHORUS
  2. MRI CONTAINING GADOLINIUM [Suspect]
     Active Substance: GADOLINIUM
     Indication: BRAIN NEOPLASM

REACTIONS (21)
  - Chest discomfort [None]
  - Arthralgia [None]
  - Chronic kidney disease [None]
  - Balance disorder [None]
  - Intestinal haemorrhage [None]
  - Pain [None]
  - Nephrolithiasis [None]
  - Nausea [None]
  - Visual impairment [None]
  - Feeling abnormal [None]
  - Muscle twitching [None]
  - Blood calcium increased [None]
  - Malaise [None]
  - Vomiting [None]
  - Photophobia [None]
  - Musculoskeletal chest pain [None]
  - Neuropathy peripheral [None]
  - Gait disturbance [None]
  - Vertigo [None]
  - Emotional disorder [None]
  - Gadolinium deposition disease [None]

NARRATIVE: CASE EVENT DATE: 20150708
